FAERS Safety Report 11894821 (Version 1)
Quarter: 2016Q1

REPORT INFORMATION
  Report Type: Spontaneous
  Country: US (occurrence: US)
  Receive Date: 20160107
  Receipt Date: 20160107
  Transmission Date: 20160526
  Serious: No
  Sender: FDA-Public Use
  Company Number: US-BAYER-2016-001355

PATIENT
  Sex: Female

DRUGS (2)
  1. MIRALAX [Suspect]
     Active Substance: POLYETHYLENE GLYCOL 3350
  2. PHILLIPS^ COLON HEALTH [Suspect]
     Active Substance: PROBIOTICS NOS
     Indication: CONSTIPATION
     Dosage: 1 DF, QD
     Route: 048

REACTIONS (3)
  - Drug ineffective [None]
  - Off label use [None]
  - Product use issue [None]
